FAERS Safety Report 6570482-8 (Version None)
Quarter: 2010Q1

REPORT INFORMATION
  Report Type: 
  Country: None (occurrence: None)
  Receive Date: 20100204
  Receipt Date: 20090921
  Transmission Date: 20100710
  Serious: No
  Sender: FDA-Public Use
  Company Number: A0806333A

PATIENT
  Age: 51 Year
  Sex: Male

DRUGS (5)
  1. ARIXTRA [Suspect]
     Dosage: 2.5MG PER DAY
     Route: 058
     Dates: start: 20090715, end: 20090822
  2. UNKNOWN [Concomitant]
  3. BACLOFEN [Concomitant]
  4. MOBIC [Concomitant]
  5. LORTAB [Concomitant]

REACTIONS (2)
  - PRODUCT QUALITY ISSUE [None]
  - SKIN LACERATION [None]
